FAERS Safety Report 9734534 (Version 7)
Quarter: 2015Q1

REPORT INFORMATION
  Report Type: Report from Study
  Country: US (occurrence: US)
  Receive Date: 20131206
  Receipt Date: 20150212
  Transmission Date: 20150721
  Serious: Yes (Other)
  Sender: FDA-Public Use
  Company Number: US-BIOGENIDEC-2013BI116349

PATIENT
  Age: 48 Year
  Sex: Female

DRUGS (13)
  1. LAMICTAL [Concomitant]
     Active Substance: LAMOTRIGINE
  2. PRISTIQ EXTENDED RELEASE [Concomitant]
     Active Substance: DESVENLAFAXINE SUCCINATE
  3. ZOLPIDEM [Concomitant]
     Active Substance: ZOLPIDEM\ZOLPIDEM TARTRATE
  4. GABAPENTIN. [Concomitant]
     Active Substance: GABAPENTIN
  5. TECFIDERA [Suspect]
     Active Substance: DIMETHYL FUMARATE
     Indication: MULTIPLE SCLEROSIS
     Route: 048
     Dates: start: 20130530
  6. JOLIVETTE [Concomitant]
     Active Substance: NORETHINDRONE
  7. LOSARTAN [Concomitant]
     Active Substance: LOSARTAN
  8. LATUDA [Concomitant]
     Active Substance: LURASIDONE HYDROCHLORIDE
  9. ESCITALOPRAM [Concomitant]
     Active Substance: ESCITALOPRAM OXALATE
  10. MELATONIN [Concomitant]
     Active Substance: MELATONIN
  11. CLONAZEPAM. [Concomitant]
     Active Substance: CLONAZEPAM
  12. TECFIDERA [Suspect]
     Active Substance: DIMETHYL FUMARATE
     Indication: MULTIPLE SCLEROSIS
     Route: 048
     Dates: end: 20140521
  13. LEVOXYL [Concomitant]
     Active Substance: LEVOTHYROXINE SODIUM

REACTIONS (4)
  - Cancer surgery [Recovered/Resolved]
  - Basal cell carcinoma [Recovered/Resolved]
  - Dysplastic naevus [Unknown]
  - Malignant melanoma [Recovered/Resolved]

NARRATIVE: CASE EVENT DATE: 201305
